FAERS Safety Report 6976551-2 (Version None)
Quarter: 2010Q3

REPORT INFORMATION
  Report Type: 
  Country: None (occurrence: None)
  Receive Date: 20100910
  Receipt Date: 20090428
  Transmission Date: 20110219
  Serious: No
  Sender: FDA-Public Use
  Company Number: US-WYE-H09139409

PATIENT
  Sex: Male

DRUGS (7)
  1. PRISTIQ [Suspect]
     Indication: DEPRESSION
     Route: 048
     Dates: start: 20090419, end: 20090101
  2. PRISTIQ [Suspect]
     Indication: PANIC DISORDER
     Route: 048
     Dates: start: 20090101
  3. PRISTIQ [Suspect]
     Indication: ANXIETY
  4. ZOLOFT [Concomitant]
  5. VICODIN [Concomitant]
  6. KLONOPIN [Concomitant]
  7. NEXIUM [Concomitant]

REACTIONS (4)
  - DRUG INEFFECTIVE [None]
  - DRUG WITHDRAWAL SYNDROME [None]
  - PARAESTHESIA [None]
  - SOMNOLENCE [None]
